FAERS Safety Report 4726850-X (Version None)
Quarter: 2005Q3

REPORT INFORMATION
  Report Type: 
  Country: None (occurrence: None)
  Receive Date: 20050726
  Receipt Date: 20050715
  Transmission Date: 20060218
  Serious: Yes (Hospitalization)
  Sender: FDA-Public Use
  Company Number: DEWYE836818JUL05

PATIENT
  Age: 42 Year
  Sex: Male

DRUGS (6)
  1. RAPAMUNE [Suspect]
     Indication: PROPHYLAXIS AGAINST TRANSPLANT REJECTION
     Dosage: 2 MG PER DAY; ORAL
     Route: 048
     Dates: start: 20040901, end: 20050404
  2. PREDNISOLONE [Suspect]
     Dosage: 7.5MG PER DAY; ORAL
     Route: 048
     Dates: start: 20040901
  3. TACROLIMUS (TACROLIMUS, , 0) [Suspect]
     Dosage: 3.5MG PER DAY; ORAL
     Route: 048
     Dates: start: 20040901
  4. SULFAMETHOXAZOLE [Concomitant]
  5. TRIMETHOPRIM [Concomitant]
  6. METOPROLOL SUCCINATE [Concomitant]

REACTIONS (3)
  - BLOOD CREATININE INCREASED [None]
  - DRUG TOXICITY [None]
  - INCISIONAL HERNIA [None]
